FAERS Safety Report 7032374-X (Version None)
Quarter: 2010Q4

REPORT INFORMATION
  Report Type: 
  Country: None (occurrence: None)
  Receive Date: 20101007
  Receipt Date: 20100804
  Transmission Date: 20110411
  Serious: Yes (Life-Threatening, Hospitalization)
  Sender: FDA-Public Use
  Company Number: DE-BRISTOL-MYERS SQUIBB COMPANY-15226822

PATIENT
  Age: 61 Year
  Sex: Male

DRUGS (3)
  1. CETUXIMAB [Suspect]
     Indication: GASTRIC CANCER
     Dosage: REC INF ON 30-JUN-2010.
     Route: 042
     Dates: start: 20100414, end: 20100630
  2. CISPLATIN [Suspect]
     Indication: GASTRIC CANCER
     Dosage: REC INF ON 16-JUN-2010.
     Route: 042
     Dates: start: 20100414, end: 20100616
  3. TAXOTERE [Suspect]
     Indication: GASTRIC ULCER
     Dosage: REC INF ON 16-JUN-2010.
     Route: 042
     Dates: start: 20100414, end: 20100616

REACTIONS (1)
  - DEHYDRATION [None]
